FAERS Safety Report 7265675-0 (Version None)
Quarter: 2011Q1

REPORT INFORMATION
  Report Type: 
  Country: None (occurrence: None)
  Receive Date: 20110131
  Receipt Date: 20110120
  Transmission Date: 20110831
  Serious: Yes (Other)
  Sender: FDA-Public Use
  Company Number: JP-MERCK-1005USA04466

PATIENT
  Age: 84 Year
  Sex: Female
  Weight: 45 kg

DRUGS (5)
  1. CALCIUM POLYSTYRENE SULFONATE [Concomitant]
     Indication: HYPERKALAEMIA
     Route: 048
     Dates: start: 20091014
  2. ALLOZYM [Concomitant]
     Indication: HYPERURICAEMIA
     Route: 048
     Dates: start: 20091028, end: 20100517
  3. DAIO-KANZO-TO [Concomitant]
     Indication: CONSTIPATION
     Route: 048
     Dates: start: 20091216
  4. AMLODIPINE BESYLATE [Concomitant]
     Indication: HYPERTENSION
     Route: 048
     Dates: start: 20090916
  5. JANUVIA [Suspect]
     Indication: DIABETES MELLITUS
     Route: 048
     Dates: start: 20091216, end: 20100517

REACTIONS (3)
  - HYPOGLYCAEMIA [None]
  - ALTERED STATE OF CONSCIOUSNESS [None]
  - DERMAL CYST [None]
